FAERS Safety Report 6673624-9 (Version None)
Quarter: 2010Q2

REPORT INFORMATION
  Report Type: 
  Country: None (occurrence: None)
  Receive Date: 20100408
  Receipt Date: 20100326
  Transmission Date: 20101027
  Serious: Yes (Hospitalization)
  Sender: FDA-Public Use
  Company Number: JP-PFIZER INC-2010028381

PATIENT
  Age: 63 Year
  Sex: Male
  Weight: 51.8 kg

DRUGS (12)
  1. SUNITINIB MALATE [Suspect]
     Indication: RENAL CELL CARCINOMA
     Dosage: 25 MG, 1X/DAY
     Route: 048
     Dates: start: 20090623, end: 20091202
  2. MEVALOTIN [Concomitant]
     Dosage: UNK
     Route: 048
  3. PARIET [Concomitant]
     Dosage: UNK
     Route: 048
  4. GENTAMICIN [Concomitant]
     Dosage: UNK
     Route: 062
  5. OXYCONTIN [Concomitant]
     Dosage: UNK
     Route: 048
     Dates: start: 20090623
  6. GLYSENNID [Concomitant]
     Dosage: UNK
     Route: 048
     Dates: start: 20090623
  7. HARNAL [Concomitant]
     Dosage: UNK
     Route: 048
     Dates: start: 20090624
  8. THYRADIN S [Concomitant]
     Route: 048
     Dates: start: 20090710, end: 20091221
  9. RINDERON-VG [Concomitant]
     Route: 062
     Dates: start: 20090710
  10. ZINC OXIDE [Concomitant]
     Dosage: UNK
     Route: 062
     Dates: start: 20090710
  11. LIRANAFTATE [Concomitant]
     Dosage: UNK
     Route: 062
     Dates: start: 20090721
  12. LAC B [Concomitant]
     Dosage: UNK
     Route: 048
     Dates: start: 20090630

REACTIONS (1)
  - PNEUMOTHORAX [None]
